FAERS Safety Report 6816108-7 (Version None)
Quarter: 2010Q3

REPORT INFORMATION
  Report Type: 
  Country: None (occurrence: None)
  Receive Date: 20100702
  Receipt Date: 20100702
  Transmission Date: 20110219
  Serious: Yes (Hospitalization)
  Sender: FDA-Public Use
  Company Number: None

PATIENT
  Age: 69 Year
  Sex: Male
  Weight: 109 kg

DRUGS (1)
  1. SULINDAC [Suspect]
     Indication: PAIN
     Dosage: 200 MG BID PO
     Route: 048
     Dates: start: 20080512, end: 20100527

REACTIONS (2)
  - CHOLELITHIASIS [None]
  - PANCREATITIS [None]
